FAERS Safety Report 13862802 (Version 1)
Quarter: 2017Q3

REPORT INFORMATION
  Report Type: Spontaneous
  Country: IT (occurrence: IT)
  Receive Date: 20170814
  Receipt Date: 20170814
  Transmission Date: 20171127
  Serious: Yes (Other)
  Sender: FDA-Public Use
  Company Number: IT-INDICUS PHARMA-000491

PATIENT
  Age: 38 Year
  Sex: Female

DRUGS (2)
  1. FOLLICLE STIMULATING HORMONE [Suspect]
     Active Substance: FOLLITROPIN
     Indication: OVULATION INDUCTION
     Dosage: DAY 5
  2. LETROZOLE. [Suspect]
     Active Substance: LETROZOLE
     Indication: OVULATION INDUCTION
     Dosage: DAY 3

REACTIONS (1)
  - Progesterone increased [Unknown]
